FAERS Safety Report 18978790 (Version 1)
Quarter: 2021Q1

REPORT INFORMATION
  Report Type: Spontaneous
  Country: GR (occurrence: GR)
  Receive Date: 20210308
  Receipt Date: 20210308
  Transmission Date: 20210420
  Serious: Yes (Other)
  Sender: FDA-Public Use
  Company Number: GR-ORGANON-1912GRC012282

PATIENT
  Age: 62 Year
  Sex: Female
  Weight: 60 kg

DRUGS (6)
  1. COVERSYL [PERINDOPRIL ARGININE] [Concomitant]
     Active Substance: PERINDOPRIL ARGININE
     Indication: ARRHYTHMIA
     Dosage: UNK, DAILY IN THE MORNING (QD)
  2. INEGY [Suspect]
     Active Substance: EZETIMIBE\SIMVASTATIN
     Dosage: 1 TABLET DAILY AT NIGHT (HS)
     Route: 048
     Dates: start: 2019
  3. CONCOR [Concomitant]
     Active Substance: BISOPROLOL FUMARATE
     Indication: ARRHYTHMIA
     Dosage: 1/2 TABLET EVERY MORNING, AND 1/2 EVERY NIGHT
  4. CONCOR [Concomitant]
     Active Substance: BISOPROLOL FUMARATE
     Indication: CARDIOVASCULAR DISORDER
  5. COVERSYL [PERINDOPRIL ARGININE] [Concomitant]
     Active Substance: PERINDOPRIL ARGININE
     Indication: CARDIOVASCULAR DISORDER
  6. INEGY [Suspect]
     Active Substance: EZETIMIBE\SIMVASTATIN
     Dosage: UNK
     Route: 048

REACTIONS (15)
  - Amnesia [Recovered/Resolved]
  - Arrhythmia [Unknown]
  - Arthralgia [Not Recovered/Not Resolved]
  - Psoriasis [Unknown]
  - Confusional state [Recovered/Resolved]
  - Abnormal dreams [Recovered/Resolved]
  - Loss of consciousness [Unknown]
  - Kyphosis [Unknown]
  - Osteopenia [Unknown]
  - Anxiety [Recovered/Resolved]
  - Myalgia [Not Recovered/Not Resolved]
  - Pruritus [Recovering/Resolving]
  - Alopecia [Unknown]
  - Product dose omission issue [Unknown]
  - Blood glucose abnormal [Unknown]

NARRATIVE: CASE EVENT DATE: 20191227
